FAERS Safety Report 7981151-1 (Version None)
Quarter: 2011Q4

REPORT INFORMATION
  Report Type: 
  Country: None (occurrence: None)
  Receive Date: 20111212
  Receipt Date: 20111206
  Transmission Date: 20120403
  Serious: Yes (Life-Threatening)
  Sender: FDA-Public Use
  Company Number: 2011SP056590

PATIENT
  Age: 31 Year
  Sex: Female

DRUGS (7)
  1. PROCHLORPERAZINE [Concomitant]
  2. NEXPLANON [Suspect]
     Indication: CONTRACEPTION
     Dosage: 68 MG;SBDE
     Dates: start: 20111024, end: 20111125
  3. ERYTHROMYCIN [Concomitant]
  4. AMOXICILLIN [Concomitant]
  5. NICOTINE [Concomitant]
  6. CITALOPRAM [Concomitant]
  7. ALBUTEROL SULFATE AUTOHALER [Concomitant]

REACTIONS (2)
  - INTRACRANIAL PRESSURE INCREASED [None]
  - VISION BLURRED [None]
